FAERS Safety Report 17817513 (Version 2)
Quarter: 2021Q1

REPORT INFORMATION
  Report Type: Spontaneous
  Country: FR (occurrence: FR)
  Receive Date: 20200522
  Receipt Date: 20210210
  Transmission Date: 20210419
  Serious: Yes (Hospitalization, Other)
  Sender: FDA-Public Use
  Company Number: PHHY2011FR107275

PATIENT
  Age: 25 Year
  Sex: Female

DRUGS (2)
  1. PARACETAMOL [Suspect]
     Active Substance: ACETAMINOPHEN
     Dosage: UNK
     Route: 048
  2. PARACETAMOL [Suspect]
     Active Substance: ACETAMINOPHEN
     Indication: PRODUCT USED FOR UNKNOWN INDICATION
     Dosage: 24 G, UNK
     Route: 048

REACTIONS (11)
  - Hepatocellular injury [Recovered/Resolved]
  - Hepatic encephalopathy [Unknown]
  - Maternal exposure during pregnancy [Unknown]
  - Pyrexia [Unknown]
  - Hepatic failure [Recovered/Resolved]
  - Premature delivery [Recovered/Resolved]
  - Encephalopathy [Recovered/Resolved]
  - Overdose [Unknown]
  - Amniotic cavity infection [Recovered/Resolved]
  - Live birth [Unknown]
  - Intentional overdose [Recovered/Resolved]
